FAERS Safety Report 22084114 (Version 1)
Quarter: 2023Q1

REPORT INFORMATION
  Report Type: Spontaneous
  Country: US (occurrence: US)
  Receive Date: 20230310
  Receipt Date: 20230310
  Transmission Date: 20230418
  Serious: No
  Sender: FDA-Public Use
  Company Number: US-MYOVANT SCIENCES GMBH-2022MYSCI1200205

PATIENT
  Age: 31 Year
  Sex: Male

DRUGS (1)
  1. ORGOVYX [Suspect]
     Active Substance: RELUGOLIX
     Indication: Gender dysphoria
     Dosage: 120 MILLIGRAM, QD
     Route: 048
     Dates: start: 202208

REACTIONS (1)
  - Off label use [Not Recovered/Not Resolved]

NARRATIVE: CASE EVENT DATE: 20220801
